FAERS Safety Report 7435311-9 (Version None)
Quarter: 2011Q2

REPORT INFORMATION
  Report Type: 
  Country: None (occurrence: None)
  Receive Date: 20110425
  Receipt Date: 20110414
  Transmission Date: 20111010
  Serious: Yes (Hospitalization)
  Sender: FDA-Public Use
  Company Number: FR-JNJFOC-20110406992

PATIENT
  Age: 85 Year
  Sex: Male

DRUGS (3)
  1. RISPERDAL [Suspect]
     Indication: ILL-DEFINED DISORDER
     Route: 048
  2. STILNOX [Concomitant]
  3. OTHER DRUGS (UNSPECIFIED) [Concomitant]

REACTIONS (3)
  - HYPOVENTILATION [None]
  - SOMNOLENCE [None]
  - RESPIRATORY TRACT CONGESTION [None]
